FAERS Safety Report 9194621 (Version 1)
Quarter: 2013Q1

REPORT INFORMATION
  Report Type: Spontaneous
  Country: US (occurrence: US)
  Receive Date: 20130327
  Receipt Date: 20130327
  Transmission Date: 20140127
  Serious: No
  Sender: FDA-Public Use
  Company Number: US-ALLERGAN-1207409US

PATIENT
  Age: 60 Year
  Sex: Female

DRUGS (5)
  1. LATISSE 0.03% [Suspect]
     Indication: GROWTH OF EYELASHES
     Dosage: 2 GTT, QHS
     Route: 061
     Dates: start: 201110, end: 201203
  2. LEXAPRO [Concomitant]
     Indication: DEPRESSION
     Route: 048
  3. LIPITOR [Concomitant]
     Indication: BLOOD CHOLESTEROL INCREASED
     Route: 048
  4. WELLBUTRIN /00700501/ [Concomitant]
     Indication: DEPRESSION
     Route: 048
  5. NEBIVOLOL [Concomitant]
     Indication: HYPERTENSION

REACTIONS (13)
  - Incorrect route of drug administration [Unknown]
  - Eyelid oedema [Recovered/Resolved]
  - Crying [Recovered/Resolved]
  - Eyelid pain [Recovered/Resolved]
  - Eye pain [Recovered/Resolved]
  - Erythema [Recovered/Resolved]
  - Eyelid pain [Recovered/Resolved]
  - Erythema [Recovered/Resolved]
  - Erythema of eyelid [Recovered/Resolved]
  - Eye swelling [Recovered/Resolved]
  - Hair growth abnormal [Unknown]
  - Ocular hyperaemia [Recovered/Resolved]
  - Skin discolouration [Recovered/Resolved]
